FAERS Safety Report 8562261-7 (Version None)
Quarter: 2012Q3

REPORT INFORMATION
  Report Type: 
  Country: None (occurrence: None)
  Receive Date: 20120802
  Receipt Date: 20120727
  Transmission Date: 20120928
  Serious: Yes (Other)
  Sender: FDA-Public Use
  Company Number: US-GILEAD-2012-0058210

PATIENT
  Sex: Female

DRUGS (5)
  1. LETAIRIS [Suspect]
     Indication: HEART DISEASE CONGENITAL
  2. LETAIRIS [Suspect]
     Indication: PULMONARY VEIN STENOSIS
  3. LETAIRIS [Suspect]
     Indication: PULMONARY HYPERTENSION
     Dosage: 5 MG, UNK
     Route: 048
     Dates: start: 20120611
  4. LETAIRIS [Suspect]
     Indication: TRISOMY 21
  5. LETAIRIS [Suspect]
     Indication: SLEEP APNOEA SYNDROME

REACTIONS (3)
  - PULMONARY OEDEMA [None]
  - OXYGEN SATURATION DECREASED [None]
  - FLUID RETENTION [None]
